FAERS Safety Report 5651057-1 (Version None)
Quarter: 2008Q1

REPORT INFORMATION
  Report Type: 
  Country: None (occurrence: None)
  Receive Date: 20080305
  Receipt Date: 20080227
  Transmission Date: 20080703
  Serious: Yes (Hospitalization)
  Sender: FDA-Public Use
  Company Number: B0504165A

PATIENT
  Age: 87 Year
  Sex: Female
  Weight: 38 kg

DRUGS (6)
  1. VALTREX [Suspect]
     Indication: HERPES ZOSTER
     Dosage: 500MG PER DAY
     Route: 048
     Dates: start: 20080104, end: 20080106
  2. BEPRICOR [Concomitant]
     Indication: ATRIAL FIBRILLATION
     Dosage: 100MG PER DAY
     Route: 048
     Dates: start: 20030701
  3. TAKEPRON [Concomitant]
     Indication: DRUG USE FOR UNKNOWN INDICATION
     Dosage: 15MG PER DAY
     Route: 048
  4. SELOKEN [Concomitant]
     Indication: ATRIAL FIBRILLATION
     Dosage: 40MG PER DAY
     Route: 048
     Dates: start: 20030701
  5. CALTAN [Concomitant]
     Dosage: 1500MG PER DAY
     Route: 048
     Dates: start: 19990101
  6. ASPIRIN [Concomitant]
     Indication: ATRIAL FIBRILLATION
     Dosage: 100MG PER DAY
     Route: 048

REACTIONS (4)
  - ALTERED STATE OF CONSCIOUSNESS [None]
  - DIZZINESS [None]
  - DYSARTHRIA [None]
  - MOTOR DYSFUNCTION [None]
